FAERS Safety Report 8910782 (Version 1)
Quarter: 2012Q4

REPORT INFORMATION
  Report Type: 
  Country: CO (occurrence: CO)
  Receive Date: 20121116
  Receipt Date: 20121116
  Transmission Date: 20130627
  Serious: Yes (Other)
  Sender: FDA-Public Use
  Company Number: CO-PFIZER INC-2012284105

PATIENT
  Sex: Male

DRUGS (3)
  1. XALATAN [Suspect]
     Indication: GLAUCOMA
     Dosage: ^50mg/2.5mg^, 1x/day
     Route: 061
     Dates: start: 2000
  2. DUOPRES [Concomitant]
     Indication: HYPERTENSION ARTERIAL
     Dosage: UNK
     Route: 048
     Dates: start: 2006, end: 201205
  3. XANAX [Concomitant]
     Indication: WORRY
     Dosage: 0.5 mg, 1x/day
     Route: 048

REACTIONS (4)
  - Constipation [Unknown]
  - Renal disorder [Unknown]
  - Blood triglycerides increased [Not Recovered/Not Resolved]
  - Prostate cancer [Unknown]
